FAERS Safety Report 11279962 (Version 2)
Quarter: 2015Q3

REPORT INFORMATION
  Report Type: Spontaneous
  Country: IT (occurrence: IT)
  Receive Date: 20150717
  Receipt Date: 20150804
  Transmission Date: 20151125
  Serious: Yes (Life-Threatening)
  Sender: FDA-Public Use
  Company Number: IT-ABBVIE-15P-083-1425710-00

PATIENT
  Age: 53 Year
  Sex: Female

DRUGS (2)
  1. DUODOPA [Suspect]
     Active Substance: CARBIDOPA\LEVODOPA
     Indication: PARKINSON^S DISEASE
     Dosage: 2.5 ML/H   FREQUENCY UNKNOWN
     Route: 050
     Dates: start: 20150630, end: 20150704
  2. UNASYN [Concomitant]
     Active Substance: AMPICILLIN SODIUM\SULBACTAM SODIUM
     Indication: PRODUCT USED FOR UNKNOWN INDICATION
     Dosage: FREQUENCY UNKNOWN
     Route: 042
     Dates: start: 20150701, end: 20150705

REACTIONS (2)
  - Carotid artery occlusion [Unknown]
  - Hemiplegia [Unknown]

NARRATIVE: CASE EVENT DATE: 20150705
